FAERS Safety Report 4737815-6 (Version None)
Quarter: 2005Q3

REPORT INFORMATION
  Report Type: 
  Country: None (occurrence: None)
  Receive Date: 20050803
  Receipt Date: 20050718
  Transmission Date: 20060218
  Serious: Yes (Hospitalization, Other)
  Sender: FDA-Public Use
  Company Number: USA0507103109

PATIENT
  Age: 23 Year
  Sex: Female

DRUGS (2)
  1. PROZAC [Suspect]
     Indication: POSTPARTUM DEPRESSION
     Dosage: 5 MG
     Dates: start: 20050623, end: 20050705
  2. DILANTIN (PHENYTOIN 00017401/) [Concomitant]

REACTIONS (12)
  - ABNORMAL BEHAVIOUR [None]
  - ANGER [None]
  - ANXIETY [None]
  - CONDITION AGGRAVATED [None]
  - CONFUSIONAL STATE [None]
  - DEPRESSION [None]
  - GRAND MAL CONVULSION [None]
  - INCORRECT DOSE ADMINISTERED [None]
  - MENTAL DISORDER [None]
  - MOOD SWINGS [None]
  - PETIT MAL EPILEPSY [None]
  - TREMOR [None]
